FAERS Safety Report 23148934 (Version 6)
Quarter: 2024Q1

REPORT INFORMATION
  Report Type: Spontaneous
  Country: US (occurrence: US)
  Receive Date: 20231106
  Receipt Date: 20240110
  Transmission Date: 20240410
  Serious: No
  Sender: FDA-Public Use
  Company Number: US-PFIZER INC-202300329898

PATIENT
  Age: 15 Year
  Sex: Male
  Weight: 55.329 kg

DRUGS (1)
  1. GENOTROPIN [Suspect]
     Active Substance: SOMATROPIN
     Indication: Growth hormone deficiency
     Dosage: 3.2 MG, 6 DAYS PER WEEK
     Dates: start: 2022

REACTIONS (1)
  - Device mechanical issue [Unknown]
